FAERS Safety Report 8549897-4 (Version None)
Quarter: 2012Q3

REPORT INFORMATION
  Report Type: 
  Country: None (occurrence: None)
  Receive Date: 20120730
  Receipt Date: 20120222
  Transmission Date: 20120928
  Serious: No
  Sender: FDA-Public Use
  Company Number: US-GLAXOSMITHKLINE-A0967012A

PATIENT
  Sex: Female

DRUGS (2)
  1. IBUPROFEN [Concomitant]
  2. IMITREX [Suspect]
     Indication: MIGRAINE
     Route: 048
     Dates: end: 20060101

REACTIONS (4)
  - PAIN [None]
  - VOMITING [None]
  - DRUG INTOLERANCE [None]
  - DRUG INEFFECTIVE [None]
